FAERS Safety Report 12485813 (Version 3)
Quarter: 2018Q2

REPORT INFORMATION
  Report Type: Spontaneous
  Country: ES (occurrence: ES)
  Receive Date: 20160621
  Receipt Date: 20180524
  Transmission Date: 20180711
  Serious: Yes (Hospitalization, Other)
  Sender: FDA-Public Use
  Company Number: ES-JNJFOC-20160612973

PATIENT
  Age: 49 Year
  Sex: Male

DRUGS (4)
  1. IBUPROFEN. [Suspect]
     Active Substance: IBUPROFEN
     Indication: BACK PAIN
     Dosage: APPROXAIMATELY 10 G A DAY
     Route: 048
  2. IBUPROFEN. [Suspect]
     Active Substance: IBUPROFEN
     Indication: HAEMOPTYSIS
     Dosage: APPROXAIMATELY 10 G A DAY
     Route: 048
  3. IBUPROFEN. [Suspect]
     Active Substance: IBUPROFEN
     Indication: HAEMOPTYSIS
     Dosage: EXCESSIVE DOSE 10G A DAY
     Route: 048
  4. IBUPROFEN. [Suspect]
     Active Substance: IBUPROFEN
     Indication: BACK PAIN
     Dosage: EXCESSIVE DOSE 10G A DAY
     Route: 048

REACTIONS (8)
  - Anaemia [Unknown]
  - Diffuse alveolar damage [Recovered/Resolved]
  - Off label use [Recovered/Resolved]
  - Drug abuse [Recovered/Resolved]
  - Pulmonary alveolar haemorrhage [Recovered/Resolved]
  - Acute kidney injury [Recovered/Resolved]
  - Extra dose administered [Unknown]
  - Product use in unapproved indication [Recovered/Resolved]
